FAERS Safety Report 9432408 (Version 1)
Quarter: 2013Q3

REPORT INFORMATION
  Report Type: Spontaneous
  Country: US (occurrence: US)
  Receive Date: 20130731
  Receipt Date: 20130731
  Transmission Date: 20140515
  Serious: No
  Sender: FDA-Public Use
  Company Number: US-009507513-1307USA016938

PATIENT
  Sex: Female

DRUGS (4)
  1. PEG-INTRON [Suspect]
     Indication: HEPATITIS C
     Dosage: UNK
  2. SUBOXONE [Concomitant]
  3. ZOLOFT [Concomitant]
  4. PROTONIX [Concomitant]

REACTIONS (1)
  - Maternal exposure timing unspecified [Unknown]
